FAERS Safety Report 23854456 (Version 1)
Quarter: 2024Q2

REPORT INFORMATION
  Report Type: Spontaneous
  Country: JP (occurrence: JP)
  Receive Date: 20240514
  Receipt Date: 20240514
  Transmission Date: 20240715
  Serious: Yes (Death, Hospitalization)
  Sender: FDA-Public Use
  Company Number: JP-NBI-J202216411BIPI

PATIENT
  Age: 61 Year
  Sex: Male
  Weight: 49 kg

DRUGS (9)
  1. GILOTRIF [Suspect]
     Active Substance: AFATINIB
     Indication: Squamous cell carcinoma of the hypopharynx
     Route: 048
     Dates: start: 20220706, end: 20220715
  2. GILOTRIF [Suspect]
     Active Substance: AFATINIB
     Indication: Hypopharyngeal cancer
  3. FENTANYL [Concomitant]
     Active Substance: FENTANYL\FENTANYL CITRATE
     Indication: Product used for unknown indication
     Route: 065
  4. PREGABALIN [Concomitant]
     Active Substance: PREGABALIN
     Indication: Product used for unknown indication
     Route: 065
  5. CARBOCYSTEINE [Concomitant]
     Active Substance: CARBOCYSTEINE
     Indication: Product used for unknown indication
     Route: 065
  6. CELECOXIB [Concomitant]
     Active Substance: CELECOXIB
     Indication: Product used for unknown indication
     Route: 065
  7. SODIUM CHLORIDE [Concomitant]
     Active Substance: SODIUM CHLORIDE
     Indication: Product used for unknown indication
     Route: 065
  8. THYRADIN-S POWDER [Concomitant]
     Indication: Product used for unknown indication
     Route: 065
  9. LEVOTHYROXINE SODIUM [Concomitant]
     Active Substance: LEVOTHYROXINE SODIUM
     Indication: Product used for unknown indication
     Route: 065

REACTIONS (7)
  - Tumour haemorrhage [Fatal]
  - Diarrhoea [Recovered/Resolved]
  - Nausea [Recovered/Resolved]
  - Vomiting [Recovered/Resolved]
  - Off label use [Unknown]
  - Pyrexia [Unknown]
  - Stomatitis [Unknown]

NARRATIVE: CASE EVENT DATE: 20220706
